FAERS Safety Report 7708420-4 (Version None)
Quarter: 2011Q3

REPORT INFORMATION
  Report Type: 
  Country: None (occurrence: None)
  Receive Date: 20110825
  Receipt Date: 20110818
  Transmission Date: 20111222
  Serious: Yes (Other)
  Sender: FDA-Public Use
  Company Number: FR-BAYER-2011-075178

PATIENT
  Age: 29 Year
  Sex: Female

DRUGS (1)
  1. NEXAVAR [Suspect]
     Indication: HEPATIC NEOPLASM MALIGNANT
     Dosage: UNK
     Route: 048
     Dates: start: 20101130, end: 20101209

REACTIONS (4)
  - TONGUE ULCERATION [None]
  - FACE OEDEMA [None]
  - DYSPNOEA [None]
  - RASH MACULO-PAPULAR [None]
